FAERS Safety Report 22534454 (Version 1)
Quarter: 2023Q2

REPORT INFORMATION
  Report Type: Spontaneous
  Country: BR (occurrence: BR)
  Receive Date: 20230608
  Receipt Date: 20230608
  Transmission Date: 20230721
  Serious: Yes (Other)
  Sender: FDA-Public Use
  Company Number: BR-ABBOTT-2023A-1364810

PATIENT
  Age: 7 Year
  Sex: Female

DRUGS (2)
  1. DEPAKOTE [Suspect]
     Active Substance: DIVALPROEX SODIUM
     Indication: Product used for unknown indication
     Route: 048
  2. MELATONIN [Concomitant]
     Active Substance: MELATONIN
     Indication: Sleep disorder therapy

REACTIONS (9)
  - Epilepsy [Unknown]
  - Behaviour disorder [Unknown]
  - Incorrect dose administered [Unknown]
  - Product administered to patient of inappropriate age [Unknown]
  - Agitation [Unknown]
  - Inappropriate affect [Unknown]
  - Product use issue [Unknown]
  - Sleep disorder [Unknown]
  - Aggression [Unknown]
